FAERS Safety Report 8564529-7 (Version None)
Quarter: 2012Q3

REPORT INFORMATION
  Report Type: 
  Country: None (occurrence: None)
  Receive Date: 20120803
  Receipt Date: 20120723
  Transmission Date: 20120928
  Serious: Yes (Hospitalization, Other)
  Sender: FDA-Public Use
  Company Number: IT-JNJFOC-20120713366

PATIENT

DRUGS (6)
  1. BUPRENORPHINE [Suspect]
     Indication: CANCER PAIN
     Route: 062
  2. OXYCODONE HCL [Suspect]
     Indication: CANCER PAIN
     Dosage: EXPRESSED AS MEDIAN, IN MG/DAY
     Route: 048
  3. FENTANYL CITRATE [Suspect]
     Indication: CANCER PAIN
     Dosage: EXPRESSED AS MEDICAN IN MG/DAY
     Route: 062
  4. HYDROMORPHONE HCL [Suspect]
     Indication: CANCER PAIN
     Route: 048
  5. MORPHINE SULFATE [Suspect]
     Indication: CANCER PAIN
     Dosage: EXPRESSED AS MEDIAN IN MG/DAY
     Route: 042
  6. MORPHINE SULFATE [Suspect]
     Dosage: EXPRESSED AS MEDIAN, IN MG/DAY
     Route: 048

REACTIONS (12)
  - ADVERSE REACTION [None]
  - TOXICITY TO VARIOUS AGENTS [None]
  - VOMITING [None]
  - NAUSEA [None]
  - DRY MOUTH [None]
  - CONSTIPATION [None]
  - HYPERHIDROSIS [None]
  - MYOCLONUS [None]
  - CONFUSIONAL STATE [None]
  - INADEQUATE ANALGESIA [None]
  - RESPIRATORY DEPRESSION [None]
  - SOMNOLENCE [None]
